FAERS Safety Report 8862006 (Version 2)
Quarter: 2012Q4

REPORT INFORMATION
  Report Type: 
  Country: US (occurrence: US)
  Receive Date: 20121025
  Receipt Date: 20121102
  Transmission Date: 20130627
  Serious: Yes (Death)
  Sender: FDA-Public Use
  Company Number: US-009507513-1210USA006719

PATIENT
  Age: 19 Year
  Sex: Male

DRUGS (7)
  1. POSACONAZOLE [Suspect]
     Indication: PNEUMONIA FUNGAL
     Dosage: UNK
  2. VORICONAZOLE [Suspect]
     Indication: PNEUMONIA FUNGAL
     Dosage: UNK
  3. ANTIMICROBIAL (UNSPECIFIED) [Suspect]
     Indication: PNEUMONIA FUNGAL
     Dosage: UNK
  4. MICAFUNGIN [Suspect]
     Indication: PNEUMONIA FUNGAL
     Dosage: UNK
  5. AMBISOME [Suspect]
     Indication: PNEUMONIA FUNGAL
     Dosage: UNK
  6. TERBINAFINE [Suspect]
     Indication: PNEUMONIA FUNGAL
     Dosage: UNK
  7. ALBENDAZOLE [Suspect]
     Indication: PNEUMONIA FUNGAL
     Dosage: UNK

REACTIONS (2)
  - Disease progression [Fatal]
  - Drug ineffective [Unknown]
